FAERS Safety Report 7200550-9 (Version None)
Quarter: 2010Q4

REPORT INFORMATION
  Report Type: 
  Country: None (occurrence: None)
  Receive Date: 20101228
  Receipt Date: 20101222
  Transmission Date: 20110411
  Serious: Yes (Death)
  Sender: FDA-Public Use
  Company Number: KR-JNJFOC-20101203288

PATIENT
  Sex: Male

DRUGS (3)
  1. TYLENOL EXTENDED RELIEF [Suspect]
     Route: 048
  2. TYLENOL EXTENDED RELIEF [Suspect]
     Indication: TOOTHACHE
     Route: 048
  3. VARIDASE [Suspect]
     Indication: TOOTHACHE
     Route: 065

REACTIONS (2)
  - CEREBRAL HAEMORRHAGE [None]
  - PLATELET DISORDER [None]
